FAERS Safety Report 11130381 (Version 2)
Quarter: 2015Q2

REPORT INFORMATION
  Report Type: Report from Study
  Country: BR (occurrence: BR)
  Receive Date: 20150522
  Receipt Date: 20150609
  Transmission Date: 20150821
  Serious: Yes (Hospitalization)
  Sender: FDA-Public Use
  Company Number: BR-ROCHE-1580035

PATIENT
  Sex: Male
  Weight: 90 kg

DRUGS (5)
  1. PULMOZYME [Suspect]
     Active Substance: DORNASE ALFA
     Indication: CYSTIC FIBROSIS
     Route: 065
  2. CREON [Concomitant]
     Active Substance: PANCRELIPASE AMYLASE\PANCRELIPASE LIPASE\PANCRELIPASE PROTEASE
  3. MONTELUKAST [Concomitant]
     Active Substance: MONTELUKAST SODIUM
     Dosage: DAILY
     Route: 065
  4. URSACOL [Concomitant]
     Active Substance: URSODIOL
  5. BEROTEC [Concomitant]
     Active Substance: FENOTEROL HYDROBROMIDE

REACTIONS (1)
  - Secretion discharge [Recovered/Resolved]
